FAERS Safety Report 9025614 (Version 3)
Quarter: 2013Q2

REPORT INFORMATION
  Report Type: Spontaneous
  Country: JP (occurrence: JP)
  Receive Date: 20130123
  Receipt Date: 20130408
  Transmission Date: 20140414
  Serious: Yes (Hospitalization)
  Sender: FDA-Public Use
  Company Number: JP-009507513-1301JPN009205

PATIENT
  Age: 82 Year
  Sex: Male
  Weight: 58 kg

DRUGS (8)
  1. TEMODAL [Suspect]
     Indication: GLIOBLASTOMA MULTIFORME
     Dosage: 150 MG/M2, QD
     Route: 048
     Dates: start: 20130115, end: 20130116
  2. TEMODAL [Suspect]
     Dosage: 120 MG/M2, QD
     Route: 048
     Dates: start: 20130301
  3. HERBESSER [Concomitant]
     Route: 065
  4. NORVASC [Concomitant]
     Route: 065
  5. ALDACTONE D [Concomitant]
     Route: 065
  6. TANATRIL [Concomitant]
     Route: 065
  7. NATRIX [Concomitant]
     Route: 065
  8. URSO [Concomitant]
     Route: 065

REACTIONS (3)
  - Cerebral haemorrhage [Recovering/Resolving]
  - Hemiplegia [Recovering/Resolving]
  - Aphasia [Recovering/Resolving]
